FAERS Safety Report 7381427-5 (Version None)
Quarter: 2011Q1

REPORT INFORMATION
  Report Type: 
  Country: None (occurrence: None)
  Receive Date: 20110321
  Receipt Date: 20110223
  Transmission Date: 20110831
  Serious: Yes (Hospitalization)
  Sender: FDA-Public Use
  Company Number: AU-022191

PATIENT
  Age: 88 Year
  Sex: Male

DRUGS (7)
  1. (TRAMADOL) [Concomitant]
  2. (METOPROLOL) [Concomitant]
  3. ALLOPURINOL [Concomitant]
  4. PROCHLORPERAZINE TAB [Concomitant]
  5. (CHLORAMBUCIL) [Suspect]
     Dates: start: 20100720, end: 20101102
  6. ACETYLSALICYLIC ACID SRT [Concomitant]
  7. FOLIC ACID [Concomitant]

REACTIONS (5)
  - BEDRIDDEN [None]
  - URINARY TRACT INFECTION [None]
  - ABDOMINAL PAIN UPPER [None]
  - OCULAR ICTERUS [None]
  - ANAEMIA HAEMOLYTIC AUTOIMMUNE [None]
